FAERS Safety Report 25244502 (Version 1)
Quarter: 2025Q2

REPORT INFORMATION
  Report Type: Spontaneous
  Country: CN (occurrence: CN)
  Receive Date: 20250428
  Receipt Date: 20250428
  Transmission Date: 20250717
  Serious: Yes (Hospitalization, Other)
  Sender: ALKEM
  Company Number: None

PATIENT
  Age: 54 Year
  Sex: Male
  Weight: 62 kg

DRUGS (14)
  1. MYCOPHENOLATE MOFETIL [Suspect]
     Active Substance: MYCOPHENOLATE MOFETIL
     Indication: Immunosuppressant drug therapy
     Dosage: 500 MILLIGRAM, BID (TWICE DAILY)
     Route: 048
  2. SIROLIMUS [Suspect]
     Active Substance: SIROLIMUS
     Indication: Immunosuppressant drug therapy
     Dosage: 2 MILLIGRAM, BID (TWICE DAILY)
     Route: 065
  3. SIROLIMUS [Suspect]
     Active Substance: SIROLIMUS
     Dosage: 1 MILLIGRAM, OD (ONCE DAILY)
     Route: 065
  4. SIROLIMUS [Suspect]
     Active Substance: SIROLIMUS
     Dosage: 0.5 MILLIGRAM, OD (ONCE DAILY) (DOSE REDUCED)
     Route: 048
  5. TACROLIMUS [Suspect]
     Active Substance: TACROLIMUS
     Indication: Immunosuppressant drug therapy
     Dosage: 2 MILLIGRAM, BID (TWICE DAILY)
     Route: 048
  6. PREDNISONE [Suspect]
     Active Substance: PREDNISONE
     Indication: Immunosuppressant drug therapy
     Dosage: 20 MILLIGRAM, OD (ONCE DAILY)
     Route: 048
  7. PREDNISONE [Suspect]
     Active Substance: PREDNISONE
     Dosage: 10 MILLIGRAM, OD (ONCE DAILY)
     Route: 065
  8. Complex Alpha-Keto Acid [Concomitant]
     Indication: Nutritional supplementation
     Route: 065
  9. CALCIUM CARBONATE [Concomitant]
     Active Substance: CALCIUM CARBONATE
     Indication: Nutritional supplementation
     Route: 065
  10. FOLIC ACID [Concomitant]
     Active Substance: FOLIC ACID
     Indication: Anaemia
     Route: 065
  11. PIPERACILLIN SODIUM\TAZOBACTAM SODIUM [Concomitant]
     Active Substance: PIPERACILLIN SODIUM\TAZOBACTAM SODIUM
     Indication: Infection prophylaxis
     Route: 042
  12. FERRIC POLYSACCHARIDE COMPLEX [Concomitant]
     Active Substance: FERRIC POLYSACCHARIDE COMPLEX
     Indication: Anaemia
     Route: 065
  13. POTASSIUM [Concomitant]
     Active Substance: POTASSIUM
     Indication: Electrolyte imbalance
     Route: 065
  14. Roxaresta [Concomitant]
     Indication: Anaemia
     Route: 065

REACTIONS (9)
  - Rhabdomyolysis [Recovered/Resolved]
  - Chronic kidney disease [Recovering/Resolving]
  - Tubulointerstitial nephritis [Recovering/Resolving]
  - Nephropathy toxic [Recovering/Resolving]
  - Respiratory tract infection [Unknown]
  - Pleural effusion [Unknown]
  - Drug level increased [Recovering/Resolving]
  - Disease progression [Recovering/Resolving]
  - Medication error [Unknown]

NARRATIVE: CASE EVENT DATE: 20200101
